FAERS Safety Report 4378129-6 (Version None)
Quarter: 2004Q2

REPORT INFORMATION
  Report Type: 
  Country: None (occurrence: None)
  Receive Date: 20040616
  Receipt Date: 20001108
  Transmission Date: 20050107
  Serious: Yes (Other)
  Sender: FDA-Public Use
  Company Number: FR-BRISTOL-MYERS SQUIBB COMPANY-10605418

PATIENT
  Sex: Female

DRUGS (6)
  1. VIDEX [Suspect]
     Indication: HIV TEST POSITIVE
  2. RETROVIR [Suspect]
  3. RETROVIR [Suspect]
     Route: 051
     Dates: start: 19981211, end: 19981211
  4. BACTRIM [Concomitant]
  5. MULTIVITAMIN [Concomitant]
  6. IRON [Concomitant]

REACTIONS (3)
  - HYPERLACTACIDAEMIA [None]
  - PREGNANCY [None]
  - TUBERCULOSIS [None]
